FAERS Safety Report 16215029 (Version 1)
Quarter: 2019Q2

REPORT INFORMATION
  Report Type: Spontaneous
  Country: KR (occurrence: KR)
  Receive Date: 20190418
  Receipt Date: 20190418
  Transmission Date: 20190711
  Serious: Yes (Other)
  Sender: FDA-Public Use
  Company Number: KR-CELLTRION INC.-2019KR020519

PATIENT

DRUGS (9)
  1. PREDNISONE. [Suspect]
     Active Substance: PREDNISONE
     Indication: LYMPHOPROLIFERATIVE DISORDER
     Dosage: 10 CYCLES OF CHEMOTHERAPY FOR 10 MONTHS
  2. MYCOPHENOLATE MOFETIL. [Suspect]
     Active Substance: MYCOPHENOLATE MOFETIL
     Indication: IMMUNOSUPPRESSION
     Dosage: UNK
  3. TACROLIMUS. [Suspect]
     Active Substance: TACROLIMUS
     Indication: IMMUNOSUPPRESSION
     Dosage: UNK
  4. DOXORUBICIN [Suspect]
     Active Substance: DOXORUBICIN
     Indication: LYMPHOPROLIFERATIVE DISORDER
     Dosage: 10 CYCLES OF CHEMOTHERAPY FOR 10 MONTHS
  5. RITUXIMAB (UNKNOWN) [Suspect]
     Active Substance: RITUXIMAB
     Indication: LYMPHOPROLIFERATIVE DISORDER
     Dosage: 10 CYCLES OF CHEMOTHERAPY FOR 10 MONTHS
  6. CYCLOPHOSPHAMIDE. [Suspect]
     Active Substance: CYCLOPHOSPHAMIDE
     Indication: LYMPHOPROLIFERATIVE DISORDER
     Dosage: 10 CYCLES OF CHEMOTHERAPY FOR 10 MONTHS
  7. VINCRISTINE [Suspect]
     Active Substance: VINCRISTINE
     Indication: LYMPHOPROLIFERATIVE DISORDER
     Dosage: 10 CYCLES OF CHEMOTHERAPY FOR 10 MONTHS
  8. BASILIXIMAB [Suspect]
     Active Substance: BASILIXIMAB
     Indication: IMMUNOSUPPRESSION
     Dosage: UNK
  9. METHYLPREDNISOLONE. [Suspect]
     Active Substance: METHYLPREDNISOLONE
     Indication: IMMUNOSUPPRESSION
     Dosage: UNK

REACTIONS (12)
  - Acute kidney injury [Unknown]
  - Enteropathy-associated T-cell lymphoma [Unknown]
  - End stage renal disease [Unknown]
  - Cytopenia [Unknown]
  - Chronic kidney disease [Unknown]
  - Small intestinal obstruction [Unknown]
  - Febrile neutropenia [Unknown]
  - Lymphopenia [Recovering/Resolving]
  - Toxicity to various agents [Unknown]
  - Polyomavirus-associated nephropathy [Unknown]
  - Viraemia [Unknown]
  - Product use issue [Unknown]
